FAERS Safety Report 19845847 (Version 1)
Quarter: 2021Q3

REPORT INFORMATION
  Report Type: Spontaneous
  Country: JP (occurrence: JP)
  Receive Date: 20210917
  Receipt Date: 20210917
  Transmission Date: 20211014
  Serious: Yes (Hospitalization)
  Sender: FDA-Public Use
  Company Number: NVSJ2021JP011724

PATIENT
  Age: 53 Year
  Sex: Male

DRUGS (39)
  1. REVOLADE [Concomitant]
     Active Substance: ELTROMBOPAG OLAMINE
     Dosage: 25 MG
     Route: 048
     Dates: start: 20190507, end: 20190519
  2. REVOLADE [Concomitant]
     Active Substance: ELTROMBOPAG OLAMINE
     Dosage: 87.5 MG
     Route: 048
     Dates: start: 20200515, end: 20200604
  3. RED BLOOD CELLS [Concomitant]
     Active Substance: HUMAN RED BLOOD CELL
     Indication: PRODUCT USED FOR UNKNOWN INDICATION
     Dosage: 4000 ML, 10 TIMES/ MONTH
     Route: 065
     Dates: start: 20190208, end: 20190307
  4. RED BLOOD CELLS [Concomitant]
     Active Substance: HUMAN RED BLOOD CELL
     Dosage: 400 ML, 1 TIME/ MONTH
     Route: 065
  5. REVOLADE [Concomitant]
     Active Substance: ELTROMBOPAG OLAMINE
     Dosage: 50 MG
     Route: 048
     Dates: start: 20190419, end: 20190506
  6. REVOLADE [Concomitant]
     Active Substance: ELTROMBOPAG OLAMINE
     Dosage: 12.5 MG
     Route: 048
     Dates: start: 20190520, end: 20190527
  7. REVOLADE [Concomitant]
     Active Substance: ELTROMBOPAG OLAMINE
     Dosage: 37.5 MG
     Route: 048
     Dates: start: 20191112, end: 20191125
  8. REVOLADE [Concomitant]
     Active Substance: ELTROMBOPAG OLAMINE
     Dosage: 75 MG
     Route: 048
     Dates: start: 20191210, end: 20200120
  9. REVOLADE [Concomitant]
     Active Substance: ELTROMBOPAG OLAMINE
     Dosage: 37.5 MG
     Route: 048
     Dates: start: 20200717, end: 20201126
  10. RED BLOOD CELLS [Concomitant]
     Active Substance: HUMAN RED BLOOD CELL
     Dosage: 400 ML, 1 TIME/ MONTH
     Route: 065
  11. PLATELETS [Concomitant]
     Active Substance: HUMAN PLATELET, ALLOGENIC
     Dosage: 2600 ML, 23 TIMES /MONTH
     Route: 065
  12. REVOLADE [Concomitant]
     Active Substance: ELTROMBOPAG OLAMINE
     Dosage: 25 MG
     Route: 048
     Dates: start: 20201127, end: 20210709
  13. ITRACONAZOLE. [Concomitant]
     Active Substance: ITRACONAZOLE
     Indication: INFECTION PROPHYLAXIS
     Dosage: 100 MG
     Route: 048
     Dates: start: 20190225
  14. RED BLOOD CELLS [Concomitant]
     Active Substance: HUMAN RED BLOOD CELL
     Dosage: 1200 ML, 3 TIME/ MONTH
     Route: 065
  15. RED BLOOD CELLS [Concomitant]
     Active Substance: HUMAN RED BLOOD CELL
     Dosage: 400 ML, 1 TIME/ MONTH
     Route: 065
  16. PLATELETS [Concomitant]
     Active Substance: HUMAN PLATELET, ALLOGENIC
     Dosage: 1600 ML, 8 MONTH/ MONTH
     Route: 065
  17. REVOLADE [Concomitant]
     Active Substance: ELTROMBOPAG OLAMINE
     Dosage: 100 MG
     Route: 048
     Dates: start: 20200121, end: 20200514
  18. RED BLOOD CELLS [Concomitant]
     Active Substance: HUMAN RED BLOOD CELL
     Dosage: 800 ML, 2 TIMES/ MONTH
     Route: 065
  19. PLATELETS [Concomitant]
     Active Substance: HUMAN PLATELET, ALLOGENIC
     Dosage: 400 ML, 2 TIMES /MONTH
     Route: 065
  20. NEORAL [Suspect]
     Active Substance: CYCLOSPORINE
     Indication: APLASTIC ANAEMIA
     Dosage: 160 MG
     Route: 048
     Dates: start: 20190225
  21. REVOLADE [Concomitant]
     Active Substance: ELTROMBOPAG OLAMINE
     Dosage: 37.5 MG
     Route: 048
     Dates: start: 20190412, end: 20190418
  22. REVOLADE [Concomitant]
     Active Substance: ELTROMBOPAG OLAMINE
     Dosage: 75 MG
     Route: 048
     Dates: start: 20200605, end: 20200625
  23. RED BLOOD CELLS [Concomitant]
     Active Substance: HUMAN RED BLOOD CELL
     Dosage: 2000 ML, 5 TIMES/ MONTH
     Route: 065
  24. RED BLOOD CELLS [Concomitant]
     Active Substance: HUMAN RED BLOOD CELL
     Dosage: 400 ML, 1 TIME/ MONTH
     Route: 065
  25. RED BLOOD CELLS [Concomitant]
     Active Substance: HUMAN RED BLOOD CELL
     Dosage: 800 ML, 2 TIME/ MONTH
     Route: 065
  26. PLATELETS [Concomitant]
     Active Substance: HUMAN PLATELET, ALLOGENIC
     Dosage: 1200 ML, 6 TIMES /MONTH
     Route: 065
  27. REVOLADE [Concomitant]
     Active Substance: ELTROMBOPAG OLAMINE
     Indication: APLASTIC ANAEMIA
     Dosage: 25 MG
     Route: 048
     Dates: start: 20190405, end: 20190411
  28. REVOLADE [Concomitant]
     Active Substance: ELTROMBOPAG OLAMINE
     Dosage: 50 MG
     Route: 048
     Dates: start: 20191126, end: 20191209
  29. VICCLOX [Concomitant]
     Active Substance: ACYCLOVIR SODIUM
     Indication: INFECTION PROPHYLAXIS
     Dosage: 200 MG
     Route: 048
     Dates: start: 20190225
  30. RED BLOOD CELLS [Concomitant]
     Active Substance: HUMAN RED BLOOD CELL
     Dosage: 400 ML, 1 TIME/ MONTH
     Route: 065
  31. REVOLADE [Concomitant]
     Active Substance: ELTROMBOPAG OLAMINE
     Dosage: 12.5 MG
     Route: 048
     Dates: start: 20191029, end: 20191104
  32. REVOLADE [Concomitant]
     Active Substance: ELTROMBOPAG OLAMINE
     Dosage: 50 MG
     Route: 048
     Dates: start: 20200626, end: 20200716
  33. RED BLOOD CELLS [Concomitant]
     Active Substance: HUMAN RED BLOOD CELL
     Dosage: 800 ML, 2 TIMES/ MONTH
     Route: 065
  34. RED BLOOD CELLS [Concomitant]
     Active Substance: HUMAN RED BLOOD CELL
     Dosage: 800 ML, 2 TIME/ MONTH
     Route: 065
  35. PLATELETS [Concomitant]
     Active Substance: HUMAN PLATELET, ALLOGENIC
     Indication: PRODUCT USED FOR UNKNOWN INDICATION
     Dosage: 2200 ML, 11 TIMES /MONTH
     Route: 065
  36. PLATELETS [Concomitant]
     Active Substance: HUMAN PLATELET, ALLOGENIC
     Dosage: 600 ML, 3 TIMES/ MONTH
     Route: 065
  37. REVOLADE [Concomitant]
     Active Substance: ELTROMBOPAG OLAMINE
     Dosage: 25 MG
     Route: 048
     Dates: start: 20191105, end: 20191111
  38. RED BLOOD CELLS [Concomitant]
     Active Substance: HUMAN RED BLOOD CELL
     Dosage: 1600 ML, 4 TIMES/ MONTH
     Route: 065
  39. RED BLOOD CELLS [Concomitant]
     Active Substance: HUMAN RED BLOOD CELL
     Dosage: 400 ML, 1 TIME/ MONTH
     Route: 065

REACTIONS (1)
  - Hepatic function abnormal [Recovering/Resolving]

NARRATIVE: CASE EVENT DATE: 20190507
